FAERS Safety Report 19021878 (Version 2)
Quarter: 2021Q1

REPORT INFORMATION
  Report Type: Spontaneous
  Country: RU (occurrence: RU)
  Receive Date: 20210317
  Receipt Date: 20210329
  Transmission Date: 20210420
  Serious: Yes (Death)
  Sender: FDA-Public Use
  Company Number: RU-ELI_LILLY_AND_COMPANY-RU202103005700

PATIENT
  Sex: Female
  Weight: 48 kg

DRUGS (5)
  1. SORBIFER DURULES [ASCORBIC ACID;FERROUS SULFA [Concomitant]
  2. ALLOPURINOL. [Concomitant]
     Active Substance: ALLOPURINOL
  3. RAMUCIRUMAB [Suspect]
     Active Substance: RAMUCIRUMAB
     Indication: GASTRIC CANCER
     Dosage: 8 MG/KG, EVERY TWO WEEKS
     Route: 042
     Dates: start: 20200807
  4. AMLODIPINUM [Concomitant]
  5. ENALAPRIL [Concomitant]
     Active Substance: ENALAPRIL

REACTIONS (8)
  - Moaning [Unknown]
  - Eating disorder [Unknown]
  - Blood pressure decreased [Unknown]
  - Disseminated intravascular coagulation [Fatal]
  - Injection site haemorrhage [Unknown]
  - Nausea [Unknown]
  - Dysstasia [Unknown]
  - Thrombosis [Fatal]
